FAERS Safety Report 23144988 (Version 1)
Quarter: 2023Q4

REPORT INFORMATION
  Report Type: Spontaneous
  Country: CN (occurrence: CN)
  Receive Date: 20231103
  Receipt Date: 20231103
  Transmission Date: 20240110
  Serious: Yes (Hospitalization, Other)
  Sender: FDA-Public Use
  Company Number: CN-PFIZER INC-PV202300178095

PATIENT
  Age: 62 Year
  Sex: Female
  Weight: 82 kg

DRUGS (3)
  1. CYTARABINE [Suspect]
     Active Substance: CYTARABINE
     Indication: Acute myeloid leukaemia
     Dosage: 200 MG, 1X/DAY
     Route: 041
     Dates: start: 20230907, end: 20230914
  2. CYTARABINE [Suspect]
     Active Substance: CYTARABINE
     Dosage: 1 MG/M2
     Route: 042
     Dates: start: 20231012, end: 20231012
  3. IDARUBICIN [Concomitant]
     Active Substance: IDARUBICIN
     Indication: Acute myeloid leukaemia
     Dosage: 20 MG, 1X/DAY
     Route: 041
     Dates: start: 20230907

REACTIONS (3)
  - Myelosuppression [Recovering/Resolving]
  - Agranulocytosis [Recovering/Resolving]
  - Platelet count decreased [Recovering/Resolving]

NARRATIVE: CASE EVENT DATE: 20230909
